FAERS Safety Report 6643899-0 (Version None)
Quarter: 2010Q1

REPORT INFORMATION
  Report Type: 
  Country: None (occurrence: None)
  Receive Date: 20100303
  Receipt Date: 20090420
  Transmission Date: 20100710
  Serious: Yes (Hospitalization)
  Sender: FDA-Public Use
  Company Number: 286405

PATIENT
  Sex: Female

DRUGS (3)
  1. NOVOLIN 70/30 [Suspect]
     Indication: DIABETES MELLITUS
  2. LEVEMIR [Suspect]
     Indication: DIABETES MELLITUS
     Dosage: ,SUBCUTANEOUS
     Route: 058
  3. BYETTA [Suspect]
     Indication: DIABETES MELLITUS

REACTIONS (3)
  - BLOOD GLUCOSE FLUCTUATION [None]
  - MALAISE [None]
  - VOMITING [None]
